FAERS Safety Report 7623560 (Version 3)
Quarter: 2012Q4

REPORT INFORMATION
  Report Type: 
  Country: BR (occurrence: BR)
  Receive Date: 20101011
  Receipt Date: 20120913
  Transmission Date: 20130627
  Serious: Yes (Hospitalization, Other)
  Sender: FDA-Public Use
  Company Number: BR-ROCHE-731365

PATIENT
  Age: 70 None
  Sex: Female
  Weight: 69 kg

DRUGS (10)
  1. RIVOTRIL [Suspect]
     Indication: SLEEP DISORDER THERAPY
     Dosage: DOSE: 0.25 MG
     Route: 065
  2. UNSPECIFIED INGREDIENT [Interacting]
     Indication: CARDIAC DISORDER
     Route: 065
  3. CITALOPRAM [Concomitant]
     Indication: SLEEP DISORDER THERAPY
     Dosage: FREQUENCY: AT NIGHT
     Route: 065
  4. SEROQUEL [Concomitant]
     Indication: SLEEP DISORDER THERAPY
     Dosage: DOSE: 0.25 MG; FREQUENCY: AT NIGHT
     Route: 065
  5. SIMVASTATIN [Concomitant]
     Indication: CARDIOVASCULAR DISORDER
     Dosage: OTHER INDICATION:UNSPECIFIED CHOLESTEROL DISORDER;DOSE: 20 MG; FREQUENCY: 1 TAB IN MORNING
     Route: 065
  6. CARVEDILOL [Concomitant]
     Route: 065
  7. HYDROCHLOROTHIAZIDE [Concomitant]
     Indication: THERAPEUTIC PROCEDURE
     Route: 065
  8. OMEPRAZOLE [Concomitant]
     Indication: GASTRIC DISORDER
     Route: 065
  9. ASS [Concomitant]
     Route: 065
  10. CLORANA [Concomitant]
     Route: 065

REACTIONS (26)
  - Cardiac disorder [Unknown]
  - Coronary artery occlusion [Recovered/Resolved]
  - Blood pressure increased [Not Recovered/Not Resolved]
  - Drug interaction [Unknown]
  - Feeling abnormal [Not Recovered/Not Resolved]
  - Angina pectoris [Not Recovered/Not Resolved]
  - Pain in extremity [Not Recovered/Not Resolved]
  - Angiopathy [Not Recovered/Not Resolved]
  - Activities of daily living impaired [Not Recovered/Not Resolved]
  - Anhedonia [Not Recovered/Not Resolved]
  - Renal disorder [Not Recovered/Not Resolved]
  - Palpitations [Not Recovered/Not Resolved]
  - Dizziness [Not Recovered/Not Resolved]
  - Dizziness [Not Recovered/Not Resolved]
  - Depressed mood [Not Recovered/Not Resolved]
  - Tachycardia [Unknown]
  - Gait disturbance [Not Recovered/Not Resolved]
  - Alopecia [Unknown]
  - Dry skin [Unknown]
  - Diarrhoea [Not Recovered/Not Resolved]
  - Tremor [Unknown]
  - Hypertension [Recovered/Resolved]
  - Mental disorder [None]
  - Drug ineffective [None]
  - Urine output decreased [None]
  - Gait disturbance [None]
